FAERS Safety Report 11269667 (Version 1)
Quarter: 2015Q3

REPORT INFORMATION
  Report Type: Spontaneous
  Country: US (occurrence: None)
  Receive Date: 20150713
  Receipt Date: 20150713
  Transmission Date: 20151125
  Serious: Yes (Disabling)
  Sender: FDA-Public Use
  Company Number: None

PATIENT
  Age: 49 Year
  Sex: Male
  Weight: 79.38 kg

DRUGS (2)
  1. ALDARA [Suspect]
     Active Substance: IMIQUIMOD
     Indication: MOLLUSCUM CONTAGIOSUM
     Dosage: APPLY MONDAY, WEDNESDAY, FRIDAY THREE TIMES DAILY APPLIED TO A SURFACE, USUALLY THE SKIN
     Route: 061
     Dates: start: 20150518, end: 20150626
  2. LISINOPRIL. [Concomitant]
     Active Substance: LISINOPRIL

REACTIONS (6)
  - Abdominal pain upper [None]
  - Myalgia [None]
  - Insomnia [None]
  - Visual acuity reduced [None]
  - Arthralgia [None]
  - Blood pressure increased [None]

NARRATIVE: CASE EVENT DATE: 20150701
